FAERS Safety Report 23585215 (Version 1)
Quarter: 2024Q1

REPORT INFORMATION
  Report Type: Spontaneous
  Country: GB (occurrence: None)
  Receive Date: 20240301
  Receipt Date: 20240301
  Transmission Date: 20240410
  Serious: Yes (Other)
  Sender: FDA-Public Use
  Company Number: 2024A044979

PATIENT
  Age: 75 Year
  Sex: Male
  Weight: 93 kg

DRUGS (10)
  1. DAPAGLIFLOZIN [Suspect]
     Active Substance: DAPAGLIFLOZIN
     Dosage: 10 UNK
     Dates: start: 20231113
  2. ALOGLIPTIN [Concomitant]
     Active Substance: ALOGLIPTIN
     Dosage: USE AS DIRECTED
     Dates: start: 20240214
  3. CIALIS [Concomitant]
     Active Substance: TADALAFIL
     Dosage: USE AS DIRECTED
     Dates: start: 20231113
  4. CIPROFLOXACIN [Concomitant]
     Active Substance: CIPROFLOXACIN
     Dates: start: 20231122, end: 20231206
  5. FLUTICASONE PROPIONATE [Concomitant]
     Active Substance: FLUTICASONE PROPIONATE
     Dosage: AS DIRECTED
     Dates: start: 20231113
  6. FLUVASTATIN [Concomitant]
     Active Substance: FLUVASTATIN SODIUM
     Dosage: AT NIGHT
     Dates: start: 20231113
  7. GLICLAZIDE [Concomitant]
     Active Substance: GLICLAZIDE
     Dates: start: 20231113
  8. LOPERAMIDE [Concomitant]
     Active Substance: LOPERAMIDE
     Dosage: AT NIGHT
     Dates: start: 20231113
  9. METFORMIN [Concomitant]
     Active Substance: METFORMIN HYDROCHLORIDE
     Dosage: WITH BIGGEST MEAL.
     Dates: start: 20240214
  10. QVAR [Concomitant]
     Active Substance: BECLOMETHASONE DIPROPIONATE
     Dates: start: 20231113

REACTIONS (3)
  - Orthostatic hypotension [Recovered/Resolved]
  - Circulatory collapse [Unknown]
  - Gastrointestinal stoma complication [Unknown]
